FAERS Safety Report 4869858-6 (Version None)
Quarter: 2005Q4

REPORT INFORMATION
  Report Type: 
  Country: None (occurrence: None)
  Receive Date: 20051223
  Receipt Date: 20051216
  Transmission Date: 20060501
  Serious: Yes (Hospitalization, Other)
  Sender: FDA-Public Use
  Company Number: KII-2005-0020322

PATIENT
  Age: 60 Year
  Sex: Female

DRUGS (7)
  1. OXYCONTIN [Suspect]
     Dosage: ORAL
     Route: 048
  2. MORPHINE SULFATE [Suspect]
  3. BENZODIAZEPINE DERIVATIVES [Concomitant]
  4. TRAMADOL HCL [Concomitant]
  5. SSRI [Concomitant]
  6. ANTIDEPRESSANTS [Concomitant]
  7. OTHER TYPE OF GASTROINTESTINAL PREPARATION [Concomitant]

REACTIONS (6)
  - ABDOMINAL PAIN [None]
  - HEART RATE INCREASED [None]
  - OVERDOSE [None]
  - PELVIC PAIN [None]
  - SOMNOLENCE [None]
  - WHITE BLOOD CELL COUNT INCREASED [None]
